FAERS Safety Report 5303222-0 (Version None)
Quarter: 2007Q2

REPORT INFORMATION
  Report Type: 
  Country: None (occurrence: None)
  Receive Date: 20070420
  Receipt Date: 20070410
  Transmission Date: 20071010
  Serious: Yes (Death, Hospitalization)
  Sender: FDA-Public Use
  Company Number: US-GENENTECH-235492

PATIENT
  Sex: Male
  Weight: 77.913 kg

DRUGS (14)
  1. BEVACIZUMAB [Suspect]
     Indication: NON-SMALL CELL LUNG CANCER
     Dosage: 1185 MG, Q3W
     Route: 042
     Dates: start: 20061218, end: 20070108
  2. ERLOTINIB [Suspect]
     Indication: NON-SMALL CELL LUNG CANCER
     Dosage: 150 MG, QD
     Route: 048
     Dates: start: 20061218, end: 20070113
  3. PREDNISONE TAB [Concomitant]
     Indication: DRUG USE FOR UNKNOWN INDICATION
     Dosage: 40 MG, UNK
  4. LISINOPRIL [Concomitant]
     Indication: DRUG USE FOR UNKNOWN INDICATION
  5. ATENOLOL [Concomitant]
  6. SIMVASTATIN [Concomitant]
     Indication: DRUG USE FOR UNKNOWN INDICATION
  7. ZETIA [Concomitant]
     Indication: DRUG USE FOR UNKNOWN INDICATION
  8. OS-CAL [Concomitant]
     Indication: DRUG USE FOR UNKNOWN INDICATION
  9. DOXYCYCLINE HYCLATE [Concomitant]
     Indication: DRUG USE FOR UNKNOWN INDICATION
  10. AVELOX [Concomitant]
     Indication: DRUG USE FOR UNKNOWN INDICATION
  11. POLYETHYLENE GLYCOL-ELECTROLYTE [Concomitant]
     Indication: DRUG USE FOR UNKNOWN INDICATION
  12. DULCOLAX [Concomitant]
     Indication: DRUG USE FOR UNKNOWN INDICATION
  13. OXYCODONE HCL [Concomitant]
     Indication: DRUG USE FOR UNKNOWN INDICATION
  14. ASPIRIN [Concomitant]
     Indication: DRUG USE FOR UNKNOWN INDICATION

REACTIONS (1)
  - RESPIRATORY DISTRESS [None]
